FAERS Safety Report 24667266 (Version 1)
Quarter: 2024Q4

REPORT INFORMATION
  Report Type: Report from Study
  Country: PK (occurrence: PK)
  Receive Date: 20241126
  Receipt Date: 20241126
  Transmission Date: 20250115
  Serious: Yes (Other)
  Sender: INCYTE
  Company Number: PK-002147023-NVSC2024PK224626

PATIENT

DRUGS (2)
  1. RUXOLITINIB [Suspect]
     Active Substance: RUXOLITINIB
     Indication: Myelofibrosis
     Dosage: 10 MG BD (4 TABS/DAY)
     Route: 048
     Dates: start: 20240805, end: 20241122
  2. RUXOLITINIB [Suspect]
     Active Substance: RUXOLITINIB
     Dosage: 15 MG (10MG PLUS 0 PLUS 5 MG), QD
     Route: 048
     Dates: start: 20241122

REACTIONS (2)
  - Anaemia [Unknown]
  - Leukopenia [Unknown]

NARRATIVE: CASE EVENT DATE: 20241122
